FAERS Safety Report 5236121-3 (Version None)
Quarter: 2007Q1

REPORT INFORMATION
  Report Type: 
  Country: None (occurrence: None)
  Receive Date: 20070212
  Receipt Date: 20070130
  Transmission Date: 20070707
  Serious: Yes (Hospitalization)
  Sender: FDA-Public Use
  Company Number: DE-AMGEN-UK204433

PATIENT
  Age: 57 Year
  Sex: Male
  Weight: 78 kg

DRUGS (3)
  1. MIMPARA [Suspect]
     Indication: PRE-EXISTING DISEASE
     Route: 065
  2. BELOC ZOK [Suspect]
  3. DIGITOXIN TAB [Concomitant]

REACTIONS (4)
  - ATRIAL FIBRILLATION [None]
  - BRADYARRHYTHMIA [None]
  - BUNDLE BRANCH BLOCK RIGHT [None]
  - DRUG INTERACTION [None]
